FAERS Safety Report 24148658 (Version 2)
Quarter: 2024Q3

REPORT INFORMATION
  Report Type: Report from Study
  Country: GB (occurrence: GB)
  Receive Date: 20240729
  Receipt Date: 20240802
  Transmission Date: 20241017
  Serious: Yes (Other)
  Sender: SANDOZ
  Company Number: GB-SANDOZ-SDZ2024GB068270

PATIENT
  Age: 68 Year
  Sex: Female

DRUGS (1)
  1. ERELZI [Suspect]
     Active Substance: ETANERCEPT-SZZS
     Indication: Rheumatoid arthritis
     Dosage: 50.000MG
     Route: 058
     Dates: start: 20220630, end: 20240427

REACTIONS (3)
  - Tooth disorder [Not Recovered/Not Resolved]
  - Impaired healing [Unknown]
  - Product storage error [Unknown]

NARRATIVE: CASE EVENT DATE: 20240501
